FAERS Safety Report 8150258-0 (Version None)
Quarter: 2012Q1

REPORT INFORMATION
  Report Type: 
  Country: None (occurrence: None)
  Receive Date: 20120220
  Receipt Date: 20120214
  Transmission Date: 20120608
  Serious: No
  Sender: FDA-Public Use
  Company Number: US-PFIZER INC-2012040736

PATIENT
  Sex: Female
  Weight: 47.619 kg

DRUGS (6)
  1. ALBUTEROL [Suspect]
     Dosage: UNK
  2. NICODERM [Suspect]
     Indication: SMOKING CESSATION THERAPY
     Dosage: UNK
     Route: 062
     Dates: start: 20111201, end: 20111226
  3. LISINOPRIL [Concomitant]
     Indication: HYPERTENSION
     Dosage: 2.5 MG, 1X/DAY
  4. POTASSIUM PENICILLIN G [Suspect]
     Dosage: UNK
  5. SULFUR [Suspect]
     Dosage: UNK
  6. DEMEROL [Suspect]
     Dosage: UNK

REACTIONS (2)
  - DRUG HYPERSENSITIVITY [None]
  - DYSSTASIA [None]
